FAERS Safety Report 5000876-3 (Version None)
Quarter: 2006Q2

REPORT INFORMATION
  Report Type: 
  Country: None (occurrence: None)
  Receive Date: 20060512
  Receipt Date: 20050427
  Transmission Date: 20061013
  Serious: No
  Sender: FDA-Public Use
  Company Number: US-GLAXOSMITHKLINE-A0556009A

PATIENT
  Age: 50 Year
  Sex: Female

DRUGS (3)
  1. RELAFEN [Suspect]
     Indication: RHEUMATOID ARTHRITIS
     Dosage: 750MG PER DAY
     Route: 048
     Dates: start: 20040101, end: 20050422
  2. AZULFIDINE [Concomitant]
  3. PREVACID [Concomitant]

REACTIONS (3)
  - DYSPEPSIA [None]
  - FLUID RETENTION [None]
  - WEIGHT INCREASED [None]
